FAERS Safety Report 5718937-X (Version None)
Quarter: 2008Q2

REPORT INFORMATION
  Report Type: 
  Country: None (occurrence: None)
  Receive Date: 20080425
  Receipt Date: 20080414
  Transmission Date: 20081010
  Serious: Yes (Other)
  Sender: FDA-Public Use
  Company Number: US-MERCK-0801USA03086

PATIENT
  Age: 66 Year
  Sex: Female

DRUGS (4)
  1. FOSAMAX [Suspect]
     Indication: OSTEOPOROSIS
     Route: 048
     Dates: start: 19960101, end: 20060101
  2. ISORDIL [Concomitant]
     Indication: CARDIAC DISORDER
     Route: 065
  3. SYNTHROID [Concomitant]
     Indication: THYROID DISORDER
     Route: 065
     Dates: start: 19900101
  4. CLIMARA [Concomitant]
     Indication: POSTMENOPAUSE
     Route: 065
     Dates: start: 19880101

REACTIONS (7)
  - BILIARY CIRRHOSIS PRIMARY [None]
  - BLOOD CHOLESTEROL INCREASED [None]
  - HYPERTENSION [None]
  - OSTEOMYELITIS [None]
  - OSTEONECROSIS [None]
  - PANCREATITIS [None]
  - RHEUMATOID ARTHRITIS [None]
